FAERS Safety Report 5001296-8 (Version None)
Quarter: 2006Q2

REPORT INFORMATION
  Report Type: 
  Country: None (occurrence: None)
  Receive Date: 20060512
  Receipt Date: 20051114
  Transmission Date: 20061013
  Serious: Yes (Hospitalization)
  Sender: FDA-Public Use
  Company Number: US-MERCK-0511USA02444

PATIENT
  Age: 79 Year
  Sex: Female
  Weight: 66 kg

DRUGS (8)
  1. VIOXX [Suspect]
     Indication: ARTHRITIS
     Route: 048
     Dates: start: 20010412, end: 20021129
  2. ASPIRIN [Concomitant]
     Route: 065
  3. K-DUR 10 [Concomitant]
     Route: 065
  4. LIPITOR [Concomitant]
     Route: 065
  5. DILANTIN [Concomitant]
     Route: 065
  6. VITAMINS (UNSPECIFIED) [Concomitant]
     Route: 065
  7. NITROGLYCERIN [Concomitant]
     Route: 065
  8. ALBUTEROL [Concomitant]
     Route: 065

REACTIONS (9)
  - ARTHRALGIA [None]
  - ASTHMA [None]
  - CHANGE OF BOWEL HABIT [None]
  - CHEST PAIN [None]
  - CORONARY ARTERY DISEASE [None]
  - EPISCLERITIS [None]
  - JOINT INJURY [None]
  - OSTEOARTHRITIS [None]
  - URINARY TRACT INFECTION [None]
